FAERS Safety Report 24108945 (Version 2)
Quarter: 2024Q3

REPORT INFORMATION
  Report Type: Report from Study
  Country: CA (occurrence: CA)
  Receive Date: 20240718
  Receipt Date: 20240903
  Transmission Date: 20241016
  Serious: Yes (Other)
  Sender: GLAXOSMITHKLINE
  Company Number: CA-GLAXOSMITHKLINE-CA2024013608

PATIENT

DRUGS (3)
  1. MEPOLIZUMAB [Suspect]
     Active Substance: MEPOLIZUMAB
     Indication: Eosinophilic granulomatosis with polyangiitis
     Dosage: 300 MG, Q4W
     Route: 058
     Dates: start: 20231010
  2. MEPOLIZUMAB [Suspect]
     Active Substance: MEPOLIZUMAB
     Indication: Asthma
     Dosage: 100 MG, Q4W
     Route: 058
  3. PREDNISONE [Concomitant]
     Active Substance: PREDNISONE
     Indication: Product used for unknown indication
     Dosage: UNK, WEANING DOWN FROM 50 MG
     Dates: start: 202305

REACTIONS (11)
  - Neuropathy peripheral [Unknown]
  - Lower respiratory tract infection [Unknown]
  - Asthma [Unknown]
  - Ocular hyperaemia [Unknown]
  - Vision blurred [Unknown]
  - Sinus disorder [Unknown]
  - Gait inability [Unknown]
  - Pain in extremity [Unknown]
  - Neuralgia [Unknown]
  - Nasopharyngitis [Unknown]
  - Wrong technique in device usage process [Unknown]

NARRATIVE: CASE EVENT DATE: 20240130
